FAERS Safety Report 14833545 (Version 1)
Quarter: 2018Q2

REPORT INFORMATION
  Report Type: Spontaneous
  Country: KR (occurrence: KR)
  Receive Date: 20180501
  Receipt Date: 20180501
  Transmission Date: 20180711
  Serious: Yes (Other)
  Sender: FDA-Public Use
  Company Number: KR-BIOTEST PHARMACEUTICALS CORPORATION-KR-2018ADM000019

PATIENT

DRUGS (1)
  1. HUMAN IMMUNOGLOBULIN [Suspect]
     Active Substance: HUMAN IMMUNOGLOBULIN G
     Indication: IMMUNE THROMBOCYTOPENIC PURPURA
     Dosage: 1 G/KG PER DAY FOR TWO DAYS
     Route: 042

REACTIONS (1)
  - Febrile neutropenia [Recovered/Resolved]
